FAERS Safety Report 19872674 (Version 2)
Quarter: 2022Q1

REPORT INFORMATION
  Report Type: Spontaneous
  Country: IN (occurrence: IN)
  Receive Date: 20210923
  Receipt Date: 20220119
  Transmission Date: 20220423
  Serious: Yes (Death, Life-Threatening, Hospitalization, Other)
  Sender: FDA-Public Use
  Company Number: None

PATIENT
  Age: 64 Year
  Sex: Male

DRUGS (4)
  1. TACROLIMUS [Suspect]
     Active Substance: TACROLIMUS
     Indication: Renal transplant
     Dosage: UNK
     Route: 065
  2. PREDNISOLONE [Suspect]
     Active Substance: PREDNISOLONE
     Indication: Renal transplant
     Dosage: UNK (TABLET)
     Route: 065
  3. MYCOPHENOLATE SODIUM [Suspect]
     Active Substance: MYCOPHENOLATE SODIUM
     Indication: Renal transplant
     Dosage: UNK
     Route: 065
  4. THYMOCYTE IMMUNE GLOBULIN NOS [Suspect]
     Active Substance: THYMOCYTE IMMUNE GLOBULIN NOS
     Indication: Renal transplant
     Dosage: UNK (TREATMENT COMPLETED)
     Route: 065
     Dates: start: 2013, end: 2013

REACTIONS (7)
  - Brunner^s gland hyperplasia [Fatal]
  - Respiratory distress [Fatal]
  - Pleural effusion [Fatal]
  - Post transplant lymphoproliferative disorder [Fatal]
  - Shock [Fatal]
  - Histoplasmosis disseminated [Fatal]
  - Melaena [Fatal]
